FAERS Safety Report 6553923-1 (Version None)
Quarter: 2010Q1

REPORT INFORMATION
  Report Type: 
  Country: None (occurrence: None)
  Receive Date: 20100127
  Receipt Date: 20100117
  Transmission Date: 20100710
  Serious: Yes (Death)
  Sender: FDA-Public Use
  Company Number: KR-PFIZER INC-2009283312

PATIENT
  Age: 41 Year
  Sex: Female
  Weight: 49 kg

DRUGS (4)
  1. VORICONAZOLE [Suspect]
     Indication: ASPERGILLOSIS
     Dosage: 400 MG, 2X/DAY
     Route: 042
     Dates: start: 20080718, end: 20080718
  2. VORICONAZOLE [Suspect]
     Dosage: 200 MG, 2X/DAY
     Route: 042
     Dates: start: 20080719, end: 20080722
  3. IMIPENEM AND CILASTATIN SODIUM [Concomitant]
     Indication: BACTERIAL INFECTION
     Dosage: 0.5 G, 4X/DAY
     Route: 042
     Dates: start: 20080619, end: 20080722
  4. SULFAMETHOXAZOLE AND TRIMETHOPRIM [Concomitant]
     Indication: BACTERIAL INFECTION
     Dosage: 1.6 G, 2X/DAY
     Route: 048
     Dates: start: 20080628, end: 20080723

REACTIONS (1)
  - PNEUMONIA [None]
